FAERS Safety Report 7061176-3 (Version None)
Quarter: 2010Q4

REPORT INFORMATION
  Report Type: 
  Country: None (occurrence: None)
  Receive Date: 20101026
  Receipt Date: 20101020
  Transmission Date: 20110411
  Serious: No
  Sender: FDA-Public Use
  Company Number: JP-ELI_LILLY_AND_COMPANY-JP201007000002

PATIENT
  Age: 72 Year
  Sex: Male

DRUGS (3)
  1. GEMZAR [Suspect]
     Indication: BILE DUCT CANCER
     Dosage: 1200 MG, UNK
     Route: 042
     Dates: start: 20100623
  2. KYTRIL [Concomitant]
  3. DECADRON [Concomitant]

REACTIONS (1)
  - DEAFNESS NEUROSENSORY [None]
